FAERS Safety Report 13158101 (Version 4)
Quarter: 2017Q2

REPORT INFORMATION
  Report Type: Spontaneous
  Country: US (occurrence: US)
  Receive Date: 20170127
  Receipt Date: 20170615
  Transmission Date: 20170830
  Serious: Yes (Hospitalization, Other)
  Sender: FDA-Public Use
  Company Number: PHEH2017US002112

PATIENT
  Age: 12 Year
  Sex: Female
  Weight: 53.5 kg

DRUGS (39)
  1. BOSULIF [Suspect]
     Active Substance: BOSUTINIB MONOHYDRATE
     Indication: LYMPHOCYTIC LEUKAEMIA
     Dosage: 500 MG, QD
     Route: 048
     Dates: start: 20161201
  2. DEXAMETHASONE. [Concomitant]
     Active Substance: DEXAMETHASONE
     Indication: VOMITING
     Dosage: 2 MG, Q8H
     Route: 042
  3. MARINOL [Concomitant]
     Active Substance: DRONABINOL
     Indication: PRODUCT USED FOR UNKNOWN INDICATION
     Dosage: 1 DF, Q12H (5 MG TOTAL)
     Route: 048
     Dates: start: 20170118
  4. VITAMIN D [Concomitant]
     Active Substance: CHOLECALCIFEROL
     Indication: PRODUCT USED FOR UNKNOWN INDICATION
     Dosage: 400 U, QD
     Route: 048
  5. CHOLECALCIFEROL [Concomitant]
     Active Substance: CHOLECALCIFEROL
     Indication: PRODUCT USED FOR UNKNOWN INDICATION
     Dosage: 1 DF, QD
     Route: 048
  6. BOSULIF [Suspect]
     Active Substance: BOSUTINIB MONOHYDRATE
     Indication: PRECURSOR B-LYMPHOBLASTIC LYMPHOMA
     Dosage: 500 MG, QD
     Route: 048
     Dates: start: 201701
  7. METHOTREXATE. [Concomitant]
     Active Substance: METHOTREXATE
     Indication: PRODUCT USED FOR UNKNOWN INDICATION
     Dosage: UNK UNK, QW
     Route: 048
  8. METHOTREXATE. [Concomitant]
     Active Substance: METHOTREXATE
     Dosage: 6 DF, QW
     Route: 048
     Dates: start: 20170118, end: 20170121
  9. PHENERGAN [Concomitant]
     Active Substance: PROMETHAZINE HYDROCHLORIDE
     Indication: NAUSEA
     Dosage: 1 TABLET (25 MG TOTAL) EVERY 4 HRS AS NEEDED
     Route: 048
     Dates: start: 20161202
  10. PHENERGAN [Concomitant]
     Active Substance: PROMETHAZINE HYDROCHLORIDE
     Indication: VOMITING
  11. COMPAZINE [Concomitant]
     Active Substance: PROCHLORPERAZINE MALEATE
     Indication: NAUSEA
     Dosage: 1 DF Q8H, PRN
     Route: 048
     Dates: start: 20170118
  12. COUMADIN [Concomitant]
     Active Substance: WARFARIN SODIUM
     Dosage: 1 DF (1 TAB (10 MG TOTAL)), QD
     Route: 048
     Dates: start: 20170118, end: 20170215
  13. KEPPRA [Concomitant]
     Active Substance: LEVETIRACETAM
     Indication: SEIZURE
     Dosage: 2 DF, BID(1.500 MG TOTAL)
     Route: 048
     Dates: start: 20161222
  14. NEURONTIN [Concomitant]
     Active Substance: GABAPENTIN
     Indication: PRODUCT USED FOR UNKNOWN INDICATION
     Dosage: 1 DF, TID
     Route: 048
     Dates: start: 20161129, end: 20170301
  15. ADVAIR HFA [Concomitant]
     Active Substance: FLUTICASONE PROPIONATE\SALMETEROL XINAFOATE
     Indication: PRODUCT USED FOR UNKNOWN INDICATION
     Dosage: 100 TO 50 MCG/DOSE (1 PUFF BID)
     Route: 048
     Dates: start: 20161019, end: 20170130
  16. ZOFRAN [Suspect]
     Active Substance: ONDANSETRON HYDROCHLORIDE
     Indication: VOMITING
  17. COUMADIN [Concomitant]
     Active Substance: WARFARIN SODIUM
     Indication: PRODUCT USED FOR UNKNOWN INDICATION
     Dosage: 5.25 MG, QD (0.875 TABLETS)
     Route: 048
  18. DURAGESIC [Concomitant]
     Active Substance: FENTANYL
     Indication: PAIN
     Dosage: 1 DF (12 MCG TOTAL), Q72H
     Route: 061
     Dates: start: 20161201, end: 20170215
  19. SENNA [Concomitant]
     Active Substance: SENNA LEAF\SENNOSIDES\SENNOSIDES A AND B
     Indication: PRODUCT USED FOR UNKNOWN INDICATION
     Dosage: 1 TIME A DAY AS NEEDED
     Route: 048
  20. VINCRISTINE [Concomitant]
     Active Substance: VINCRISTINE
     Dosage: 1 MG, UNK
     Route: 065
  21. DEXAMETHASONE. [Concomitant]
     Active Substance: DEXAMETHASONE
     Dosage: 4.5 MG (1 TABLET (0.5 MG TOTAL) BY MOUTH 2 TIMES A DAY FOR 4 DAYS AND WITH 4 MG TABLET), BID
     Route: 065
     Dates: start: 20170118, end: 20170122
  22. PURINETHOL [Concomitant]
     Active Substance: MERCAPTOPURINE
     Indication: PRODUCT USED FOR UNKNOWN INDICATION
     Dosage: 800 MG, QW\125 (2 AND HALF TAB) DAILY FOR 4 DAYS AND 100 MG (2 TABS DAILY FOR 3 DAYS)
     Route: 048
  23. VINCRISTINE [Concomitant]
     Active Substance: VINCRISTINE
     Indication: PRODUCT USED FOR UNKNOWN INDICATION
     Dosage: 6 OT, QD
     Route: 048
  24. COMPAZINE [Concomitant]
     Active Substance: PROCHLORPERAZINE MALEATE
     Indication: VOMITING
  25. DILAUDID [Concomitant]
     Active Substance: HYDROMORPHONE HYDROCHLORIDE
     Indication: PRODUCT USED FOR UNKNOWN INDICATION
     Dosage: 1 DF, Q6H\AS NEEDED
     Route: 048
  26. BIOGAIA [Concomitant]
     Active Substance: LACTOBACILLUS REUTERI
     Indication: PRODUCT USED FOR UNKNOWN INDICATION
     Dosage: 1 DF, QD
     Route: 048
  27. METHOTREXATE. [Concomitant]
     Active Substance: METHOTREXATE
     Dosage: 75 MG, QD
     Route: 065
  28. CLINDAMYCIN. [Concomitant]
     Active Substance: CLINDAMYCIN
     Indication: CYSTIC FIBROSIS LUNG
     Dosage: 300 MG, TID
     Route: 048
  29. BENADRYL [Concomitant]
     Active Substance: DIPHENHYDRAMINE HYDROCHLORIDE
     Indication: NAUSEA
     Dosage: UNK UNK, PRN
     Route: 065
  30. PEPCID [Concomitant]
     Active Substance: FAMOTIDINE
     Indication: PRODUCT USED FOR UNKNOWN INDICATION
     Dosage: 1 DF,(FOR 7 DAYS WHEN ON STEROIDS) BID
     Route: 048
     Dates: start: 20161220, end: 20170118
  31. ASPIRIN. [Concomitant]
     Active Substance: ASPIRIN
     Indication: PRODUCT USED FOR UNKNOWN INDICATION
     Dosage: 81 MG ON SUNDAY AND WEDNESDAY
     Route: 048
  32. PULMICORT TURBUHALER [Concomitant]
     Active Substance: BUDESONIDE
     Indication: DYSPNOEA
     Dosage: 1 DF (INHALE 1 UNIT DOSE BY NEBULIZATION) BID, AS NEEDED
     Route: 055
  33. PULMICORT TURBUHALER [Concomitant]
     Active Substance: BUDESONIDE
     Indication: WHEEZING
  34. ZOFRAN [Suspect]
     Active Substance: ONDANSETRON HYDROCHLORIDE
     Indication: NAUSEA
     Dosage: 1 DF, EVERY 8 HRS, AS NEEDED
     Route: 048
     Dates: start: 20161105
  35. AMOXIL [Concomitant]
     Active Substance: AMOXICILLIN
     Indication: PRODUCT USED FOR UNKNOWN INDICATION
     Dosage: 1 DF, QD (IN MORNING)
     Route: 048
  36. PULMICORT TURBUHALER [Concomitant]
     Active Substance: BUDESONIDE
     Indication: COUGH
  37. PURINETHOL [Concomitant]
     Active Substance: MERCAPTOPURINE
     Dosage: 1.5 (TAB) DF, QD
     Route: 048
     Dates: start: 20170118, end: 20170217
  38. EMLA [Concomitant]
     Active Substance: LIDOCAINE\PRILOCAINE
     Indication: VENIPUNCTURE
     Dosage: (APPLIED TO VENIPUNCTURE OR POST SITE 30 MINUTES PRIOR TO ACCESS)
     Route: 065
     Dates: start: 20161019
  39. LOVENOX [Concomitant]
     Active Substance: ENOXAPARIN SODIUM
     Indication: PRODUCT USED FOR UNKNOWN INDICATION
     Dosage: 60 MG, BID
     Route: 065

REACTIONS (25)
  - Nausea [Recovered/Resolved]
  - Feeding disorder [Recovering/Resolving]
  - Pulmonary oedema [Unknown]
  - Sleep apnoea syndrome [Unknown]
  - Drug ineffective [Unknown]
  - Hypoxia [Unknown]
  - Bone marrow failure [Unknown]
  - Lung disorder [Unknown]
  - Diarrhoea [Recovering/Resolving]
  - Transaminases increased [Recovered/Resolved]
  - Cardiac murmur [Unknown]
  - Dizziness [Unknown]
  - Neutropenia [Recovered/Resolved]
  - Pain [Recovered/Resolved]
  - Malaise [Unknown]
  - Dehydration [Recovered/Resolved]
  - Retching [Unknown]
  - Hypophagia [Recovering/Resolving]
  - Blood bilirubin increased [Unknown]
  - Vomiting [Recovered/Resolved]
  - Pneumonia [Recovered/Resolved]
  - Decreased appetite [Unknown]
  - Blood glucose increased [Unknown]
  - Pyrexia [Unknown]
  - Abdominal pain [Recovered/Resolved]

NARRATIVE: CASE EVENT DATE: 20161201
